FAERS Safety Report 9645029 (Version 3)
Quarter: 2014Q1

REPORT INFORMATION
  Report Type: Spontaneous
  Country: US (occurrence: US)
  Receive Date: 20131025
  Receipt Date: 20140212
  Transmission Date: 20141002
  Serious: No
  Sender: FDA-Public Use
  Company Number: US-PFIZER INC-2013303225

PATIENT
  Age: 65 Year
  Sex: Female

DRUGS (1)
  1. SUTENT [Suspect]
     Dosage: 12.5 MG, 1X/DAY
     Route: 048
     Dates: start: 20121102

REACTIONS (7)
  - Blister [Unknown]
  - Diarrhoea [Unknown]
  - Facial pain [Unknown]
  - Toothache [Unknown]
  - Eye disorder [Unknown]
  - Pain in extremity [Unknown]
  - Gastric disorder [Unknown]
